FAERS Safety Report 10061262 (Version 1)
Quarter: 2014Q2

REPORT INFORMATION
  Report Type: Other
  Country: US (occurrence: US)
  Receive Date: 20140407
  Receipt Date: 20140407
  Transmission Date: 20141212
  Serious: Yes (Life-Threatening, Hospitalization, Other)
  Sender: FDA-Public Use
  Company Number: US-ACTELION-A-CH2014-96703

PATIENT
  Age: 48 Year
  Sex: Female

DRUGS (1)
  1. VELETRI [Suspect]
     Indication: PULMONARY ARTERIAL HYPERTENSION
     Dosage: UNK
     Route: 042

REACTIONS (9)
  - Endocarditis bacterial [Unknown]
  - Aortic valve incompetence [Unknown]
  - Pyrexia [Unknown]
  - Abscess bacterial [Unknown]
  - Device related infection [Recovered/Resolved]
  - Clostridium test positive [Unknown]
  - Catheter removal [Recovered/Resolved]
  - Culture tissue specimen positive [Unknown]
  - Gastroenteritis [Recovered/Resolved]
